FAERS Safety Report 9830439 (Version 3)
Quarter: 2014Q2

REPORT INFORMATION
  Report Type: Spontaneous
  Country: US (occurrence: US)
  Receive Date: 20140120
  Receipt Date: 20140613
  Transmission Date: 20141212
  Serious: Yes (Other)
  Sender: FDA-Public Use
  Company Number: US-JNJFOC-20140105991

PATIENT
  Age: 32 Year
  Sex: Female
  Weight: 59.88 kg

DRUGS (3)
  1. XARELTO [Suspect]
     Indication: THROMBOSIS
     Route: 048
     Dates: start: 20131211
  2. XARELTO [Suspect]
     Indication: THROMBOSIS
     Route: 048
     Dates: start: 20140103, end: 20140106
  3. ORTHO TRI CYCLEN LO [Concomitant]
     Indication: CONTRACEPTION
     Route: 065

REACTIONS (8)
  - Asthma [Recovered/Resolved]
  - Dyspnoea [Recovered/Resolved]
  - Mental impairment [Recovered/Resolved]
  - Palpitations [Recovered/Resolved]
  - Anxiety [Recovered/Resolved]
  - Lethargy [Recovered/Resolved]
  - Fatigue [Recovered/Resolved]
  - Dizziness [Recovered/Resolved]
